FAERS Safety Report 14534382 (Version 1)
Quarter: 2018Q1

REPORT INFORMATION
  Report Type: Spontaneous
  Country: GB (occurrence: GB)
  Receive Date: 20180215
  Receipt Date: 20180215
  Transmission Date: 20180509
  Serious: Yes (Other)
  Sender: FDA-Public Use
  Company Number: GB-ASTRAZENECA-2018SE15993

PATIENT
  Age: 84 Year
  Sex: Female

DRUGS (8)
  1. ATENOLOL. [Suspect]
     Active Substance: ATENOLOL
     Dosage: 100.0MG UNKNOWN
     Route: 048
  2. CO-CARELDOPA [Suspect]
     Active Substance: CARBIDOPA\LEVODOPA
     Dosage: 12.5MG UNKNOWN
     Route: 065
  3. OMEPRAZOLE. [Suspect]
     Active Substance: OMEPRAZOLE
     Dosage: 20.0MG UNKNOWN
     Route: 048
  4. LISINOPRIL. [Suspect]
     Active Substance: LISINOPRIL
     Dosage: 12.5MG UNKNOWN
     Route: 048
  5. CORACTEN [Suspect]
     Active Substance: NIFEDIPINE
     Dosage: 60.0MG UNKNOWN
     Route: 065
  6. ACETYLSALICYLIC ACID [Suspect]
     Active Substance: ASPIRIN
     Dosage: 75.0MG UNKNOWN
     Route: 048
  7. PRAMIPEXOLE. [Suspect]
     Active Substance: PRAMIPEXOLE
     Dosage: 0.88MG UNKNOWN
     Route: 065
  8. MIRABEGRON [Suspect]
     Active Substance: MIRABEGRON
     Dosage: 50.0MG UNKNOWN
     Route: 065

REACTIONS (6)
  - Confusional state [Unknown]
  - Accidental overdose [Unknown]
  - Anxiety [Unknown]
  - Tachycardia [Unknown]
  - Hyperventilation [Unknown]
  - Drug dispensed to wrong patient [Unknown]

NARRATIVE: CASE EVENT DATE: 20171104
